FAERS Safety Report 16745870 (Version 1)
Quarter: 2019Q3

REPORT INFORMATION
  Report Type: Spontaneous
  Country: IT (occurrence: IT)
  Receive Date: 20190827
  Receipt Date: 20190827
  Transmission Date: 20191005
  Serious: Yes (Other)
  Sender: FDA-Public Use
  Company Number: IT-MYLANLABS-2019M1079413

PATIENT
  Age: 75 Year
  Sex: Male

DRUGS (5)
  1. ERBITUX [Suspect]
     Active Substance: CETUXIMAB
     Indication: COLON CANCER
     Dosage: 447 MILLIGRAM, QW
     Route: 042
     Dates: start: 20181108
  2. FOLINIC ACID [Concomitant]
     Active Substance: LEUCOVORIN
     Indication: COLON CANCER
     Dosage: 358 MILLIGRAM, CYCLE
     Route: 042
     Dates: start: 20181120
  3. OXALIPLATIN. [Suspect]
     Active Substance: OXALIPLATIN
     Indication: COLON CANCER
     Dosage: 106 MILLIGRAM, CYCLE
     Route: 042
     Dates: start: 20181120
  4. FLUOROURACILE [Suspect]
     Active Substance: FLUOROURACIL
     Indication: COLON CANCER
     Dosage: 750 MILLIGRAM, CYCLE
     Route: 041
     Dates: start: 20181120
  5. FLUORO-URACILE [Suspect]
     Active Substance: FLUOROURACIL
     Indication: COLON CANCER
     Dosage: 501 MILLIGRAM, CYCLE
     Route: 040
     Dates: start: 20181120

REACTIONS (1)
  - Neurotoxicity [Recovered/Resolved]

NARRATIVE: CASE EVENT DATE: 20190212
